FAERS Safety Report 9985255 (Version 1)
Quarter: 2014Q1

REPORT INFORMATION
  Report Type: Report from Study
  Country: US (occurrence: US)
  Receive Date: 20140307
  Receipt Date: 20140307
  Transmission Date: 20141002
  Serious: No
  Sender: FDA-Public Use
  Company Number: US-ABBVIE-13P-163-1184682-00

PATIENT
  Age: 64 Year
  Sex: Female

DRUGS (19)
  1. HUMIRA [Suspect]
     Indication: CROHN^S DISEASE
     Dates: start: 20131031
  2. EFFEXOR [Concomitant]
     Indication: BIPOLAR DISORDER
     Dosage: GENERIC
  3. LAMICTAL [Concomitant]
     Indication: BIPOLAR DISORDER
     Dosage: GENERIC
  4. VALACYCLOVIR [Concomitant]
     Indication: ORAL HERPES
     Dosage: GENERIC
  5. DEXILANT [Concomitant]
     Indication: GASTROOESOPHAGEAL REFLUX DISEASE
     Dosage: GENERIC
  6. PROTONIX [Concomitant]
     Indication: GASTROOESOPHAGEAL REFLUX DISEASE
     Dosage: GENERIC
  7. LOSARTAN [Concomitant]
     Indication: HYPERTENSION
     Dosage: GENERIC
  8. DESYREL [Concomitant]
     Indication: INSOMNIA
     Dosage: GENERIC, AT BEDTIME
  9. DALMANE [Concomitant]
     Indication: INSOMNIA
     Dosage: GENERIC, AT BEDTIME
  10. ASPIRIN [Concomitant]
     Indication: ISCHAEMIC HEART DISEASE PROPHYLAXIS
     Dosage: ON HOLD FOR TEN DAYS PRIOR TO SURGERY ON 26 DEC 2013
  11. PRAVASTATIN [Concomitant]
     Indication: BLOOD CHOLESTEROL INCREASED
     Dosage: GENERIC
  12. B-12 [Concomitant]
     Indication: VITAMIN SUPPLEMENTATION
     Dosage: ON HOLD FOR TEN DAYS PRIOR TO SURGERY ON 26 DEC 2013
  13. FISH OIL [Concomitant]
     Indication: NUTRITIONAL SUPPLEMENTATION
     Dosage: ON HOLD FOR TEN DAYS PRIOR TO SURGERY ON 26 DEC 2013
  14. CALCIUM CITRATE [Concomitant]
     Indication: MINERAL SUPPLEMENTATION
  15. RESTASIS [Concomitant]
     Indication: DRY EYE
  16. REFRESH EYE DROPS [Concomitant]
     Indication: DRY EYE
  17. DILAUDID [Concomitant]
     Indication: MIGRAINE
  18. HYDROCODONE [Concomitant]
     Indication: MIGRAINE
  19. SYNTHROID [Concomitant]
     Indication: HYPOTHYROIDISM
     Dosage: GENERIC

REACTIONS (4)
  - Fatigue [Not Recovered/Not Resolved]
  - Throat irritation [Not Recovered/Not Resolved]
  - Nasopharyngitis [Not Recovered/Not Resolved]
  - Eye pruritus [Unknown]
